FAERS Safety Report 5235109-6 (Version None)
Quarter: 2007Q1

REPORT INFORMATION
  Report Type: 
  Country: None (occurrence: None)
  Receive Date: 20070207
  Receipt Date: 20070122
  Transmission Date: 20070707
  Serious: Yes (Life-Threatening)
  Sender: FDA-Public Use
  Company Number: 2007000143

PATIENT
  Age: 66 Year
  Sex: Female

DRUGS (3)
  1. ERLOTINIB (TABLET)  (ERLOTINIB HCL) [Suspect]
     Indication: NEOPLASM MALIGNANT
     Dosage: 150 MG (QD), ORAL
     Route: 048
  2. PACLITAXEL [Suspect]
     Dosage: UNK, INTRAVENOUS
     Route: 042
  3. CARBOPLATIN [Suspect]
     Dosage: UNK, INTRAVENOUS
     Route: 042

REACTIONS (1)
  - ILEUS [None]
